FAERS Safety Report 6369917-5 (Version None)
Quarter: 2009Q3

REPORT INFORMATION
  Report Type: 
  Country: None (occurrence: None)
  Receive Date: 20090923
  Receipt Date: 20070827
  Transmission Date: 20100115
  Serious: Yes (Other)
  Sender: FDA-Public Use
  Company Number: US-ASTRAZENECA-2006UW10853

PATIENT
  Age: 12227 Day
  Sex: Female
  Weight: 51.3 kg

DRUGS (36)
  1. SEROQUEL [Suspect]
     Indication: DEPRESSION
     Route: 048
     Dates: start: 19990101, end: 20010101
  2. SEROQUEL [Suspect]
     Indication: SLEEP DISORDER
     Route: 048
     Dates: start: 19990101, end: 20010101
  3. SEROQUEL [Suspect]
     Route: 048
     Dates: start: 20020102, end: 20030501
  4. SEROQUEL [Suspect]
     Route: 048
     Dates: start: 20020102, end: 20030501
  5. SEROQUEL [Suspect]
     Route: 048
     Dates: start: 20051005
  6. SEROQUEL [Suspect]
     Route: 048
     Dates: start: 20051005
  7. SEROQUEL [Suspect]
     Route: 048
     Dates: start: 20071115
  8. SEROQUEL [Suspect]
     Route: 048
     Dates: start: 20071115
  9. EFFEXOR XR [Concomitant]
     Dosage: 37.5G TO 150 MG
  10. ZOLOFT [Concomitant]
  11. LEXAPRO [Concomitant]
  12. SERAX [Concomitant]
     Dosage: 30 MG TO 90 MG
  13. TRAZODONE [Concomitant]
     Dosage: 30 MG TO 150 MG
  14. PHENAZOPYRIDINE HCL TAB [Concomitant]
  15. ALBUTEROL [Concomitant]
  16. ADVAIR DISKUS 100/50 [Concomitant]
     Dosage: 100/50 TO 500-50
  17. WELLBUTRIN [Concomitant]
  18. PREVACID [Concomitant]
     Dosage: 30 MG TO 150 MG
  19. ANUCORT HC [Concomitant]
  20. METOCLOPRAMIDE [Concomitant]
     Dosage: 5 MG TO 10 MG
  21. ATIVAN [Concomitant]
  22. DIAZEPAM [Concomitant]
     Dosage: 2 MG TO 10 MG
  23. NEXIUM [Concomitant]
  24. TOFRANIL-PM [Concomitant]
  25. TOPAMAX [Concomitant]
  26. PAROXETINE HCL [Concomitant]
  27. NITROGLYCERIN [Concomitant]
  28. NITROGLYCERIN [Concomitant]
  29. ISOSORBIDE [Concomitant]
     Dosage: 30 MG TO 150 MG
  30. METOPROLOL TARTRATE [Concomitant]
  31. ABILIFY [Concomitant]
  32. CYMBALTA [Concomitant]
     Dosage: 30 MG TO 60 MG
  33. ZYPREXA [Concomitant]
  34. XANAX [Concomitant]
  35. GEODON [Concomitant]
  36. CYCLOBENZAPRINE [Concomitant]

REACTIONS (2)
  - DIABETES MELLITUS INADEQUATE CONTROL [None]
  - DIABETIC COMA [None]
